FAERS Safety Report 18368204 (Version 1)
Quarter: 2020Q4

REPORT INFORMATION
  Report Type: Spontaneous
  Country: US (occurrence: US)
  Receive Date: 20201009
  Receipt Date: 20201009
  Transmission Date: 20210114
  Serious: Yes (Hospitalization)
  Sender: FDA-Public Use
  Company Number: US-3M-2020-US-020789

PATIENT
  Age: 64 Year
  Sex: Female

DRUGS (1)
  1. AVAGARD D [Suspect]
     Active Substance: ALCOHOL
     Indication: ANTI-INFECTIVE THERAPY
     Dosage: 6 ML TOPICALLY AS NEEDED
     Route: 061
     Dates: start: 20200925, end: 20200925

REACTIONS (3)
  - Swelling [Recovered/Resolved]
  - Urticaria [Recovered/Resolved]
  - Hypersensitivity [Recovered/Resolved]

NARRATIVE: CASE EVENT DATE: 20200925
